FAERS Safety Report 23921259 (Version 1)
Quarter: 2024Q2

REPORT INFORMATION
  Report Type: Spontaneous
  Country: US (occurrence: None)
  Receive Date: 20240529
  Receipt Date: 20240529
  Transmission Date: 20240716
  Serious: Yes (Other)
  Sender: FDA-Public Use
  Company Number: None

PATIENT
  Age: 41 Year
  Sex: Female
  Weight: 85.5 kg

DRUGS (6)
  1. CIMZIA [Suspect]
     Active Substance: CERTOLIZUMAB PEGOL
     Indication: Ankylosing spondylitis
     Dosage: 2 INJECTIONS ONCE A MONTH SUBCUTANEOUS?
     Route: 058
     Dates: start: 20240520, end: 20240521
  2. Levohyroxine [Concomitant]
  3. ROSUVASTATIN [Concomitant]
  4. Spirnolactone [Concomitant]
  5. VITAMINS [Concomitant]
     Active Substance: VITAMINS
  6. daily allergy pill [Concomitant]

REACTIONS (10)
  - Pruritus [None]
  - Urticaria [None]
  - Vomiting [None]
  - Diarrhoea [None]
  - Loss of consciousness [None]
  - Nausea [None]
  - Hypotension [None]
  - Abdominal pain [None]
  - Syncope [None]
  - Laboratory test abnormal [None]

NARRATIVE: CASE EVENT DATE: 20240527
